FAERS Safety Report 8591675-4 (Version None)
Quarter: 2012Q3

REPORT INFORMATION
  Report Type: 
  Country: None (occurrence: None)
  Receive Date: 20120814
  Receipt Date: 20120802
  Transmission Date: 20120928
  Serious: Yes (Other)
  Sender: FDA-Public Use
  Company Number: NL-CELGENEUS-114-21880-11122905

PATIENT
  Sex: Male

DRUGS (7)
  1. MELPHALAN HYDROCHLORIDE [Suspect]
     Dosage: 16 MILLIGRAM
     Route: 048
     Dates: start: 20100923
  2. REVLIMID [Suspect]
     Indication: MULTIPLE MYELOMA
     Route: 048
     Dates: start: 20100504
  3. PREDNISONE TAB [Suspect]
     Dosage: 140 MILLIGRAM
     Route: 048
     Dates: start: 20100923
  4. PREDNISONE TAB [Suspect]
     Indication: MULTIPLE MYELOMA
     Route: 065
     Dates: start: 20100504
  5. REVLIMID [Suspect]
     Dosage: 10 MILLIGRAM
     Route: 048
     Dates: start: 20100923
  6. MELPHALAN HYDROCHLORIDE [Suspect]
     Indication: MULTIPLE MYELOMA
     Route: 065
     Dates: start: 20100504
  7. REVLIMID [Suspect]
     Route: 048
     Dates: start: 20110110

REACTIONS (1)
  - BASAL CELL CARCINOMA [None]
